FAERS Safety Report 7997290-5 (Version None)
Quarter: 2011Q4

REPORT INFORMATION
  Report Type: 
  Country: None (occurrence: None)
  Receive Date: 20111221
  Receipt Date: 20111212
  Transmission Date: 20120403
  Serious: No
  Sender: FDA-Public Use
  Company Number: US-B.I. PHARMACEUTICALS,INC./RIDGEFIELD-2011-BP-27897BP

PATIENT
  Sex: Female

DRUGS (6)
  1. PRADAXA [Suspect]
     Dosage: 150 MG
     Route: 048
     Dates: start: 20101001
  2. STEROIDS [Concomitant]
     Indication: PERICARDITIS
     Dates: start: 20070101
  3. PRADAXA [Suspect]
     Indication: ATRIAL FIBRILLATION
     Dosage: 300 MG
     Route: 048
     Dates: start: 20101001, end: 20101001
  4. MULTAQ [Concomitant]
     Indication: ATRIAL FIBRILLATION
     Dosage: 800 MG
     Route: 048
  5. STEROIDS [Concomitant]
     Indication: DRESSLER'S SYNDROME
  6. NEXIUM [Concomitant]
     Indication: OESOPHAGEAL PAIN
     Dosage: 80 MG
     Route: 048

REACTIONS (4)
  - BLOOD VISCOSITY INCREASED [None]
  - DYSGEUSIA [None]
  - OESOPHAGEAL PAIN [None]
  - ABDOMINAL PAIN UPPER [None]
